FAERS Safety Report 5263362-1 (Version None)
Quarter: 2007Q1

REPORT INFORMATION
  Report Type: 
  Country: None (occurrence: None)
  Receive Date: 20070313
  Receipt Date: 20070228
  Transmission Date: 20070707
  Serious: Yes (Other)
  Sender: FDA-Public Use
  Company Number: PHNU2007DE01036

PATIENT
  Age: 67 Year
  Sex: Female

DRUGS (1)
  1. AREDIA [Suspect]
     Indication: MULTIPLE MYELOMA
     Dosage: 60 MG, QMO
     Route: 042
     Dates: start: 20010101, end: 20060101

REACTIONS (5)
  - BIOPSY SITE UNSPECIFIED ABNORMAL [None]
  - BONE DISORDER [None]
  - DENTAL TREATMENT [None]
  - OSTEOMYELITIS [None]
  - OSTEOTOMY [None]
